FAERS Safety Report 8539284-7 (Version None)
Quarter: 2012Q3

REPORT INFORMATION
  Report Type: 
  Country: None (occurrence: None)
  Receive Date: 20120726
  Receipt Date: 20110720
  Transmission Date: 20120928
  Serious: No
  Sender: FDA-Public Use
  Company Number: US-ASTRAZENECA-2011SE43649

PATIENT
  Sex: Male

DRUGS (5)
  1. COLACE [Concomitant]
     Dates: start: 20050504
  2. SEROQUEL [Suspect]
     Route: 048
     Dates: start: 20040524
  3. KLONOPIN [Concomitant]
     Dosage: PRN
     Dates: start: 20040524
  4. DEPAKOTE CR [Concomitant]
     Dates: start: 20040524
  5. ESKALITH CR [Concomitant]
     Dates: start: 20040524

REACTIONS (2)
  - GENITAL HERPES [None]
  - TYPE 2 DIABETES MELLITUS [None]
